FAERS Safety Report 7176767-9 (Version None)
Quarter: 2010Q4

REPORT INFORMATION
  Report Type: 
  Country: None (occurrence: None)
  Receive Date: 20101220
  Receipt Date: 20101206
  Transmission Date: 20110411
  Serious: Yes (Other)
  Sender: FDA-Public Use
  Company Number: PHHY2010US38219

PATIENT
  Sex: Male

DRUGS (2)
  1. FOCALIN XR [Suspect]
     Indication: AGGRESSION
     Dosage: 5 MG, QD
     Dates: start: 20100401, end: 20100520
  2. FOCALIN XR [Suspect]
     Dosage: 10 MG
     Dates: end: 20100520

REACTIONS (2)
  - ABNORMAL BEHAVIOUR [None]
  - HALLUCINATION [None]
